FAERS Safety Report 8281470-8 (Version None)
Quarter: 2012Q2

REPORT INFORMATION
  Report Type: 
  Country: None (occurrence: None)
  Receive Date: 20120413
  Receipt Date: 20120410
  Transmission Date: 20120825
  Serious: Yes (Other)
  Sender: FDA-Public Use
  Company Number: US-PFIZER INC-2009153018

PATIENT
  Sex: Female
  Weight: 62.132 kg

DRUGS (6)
  1. CELEBREX [Suspect]
     Indication: ARTHRALGIA
     Dosage: 200 MG, 2X/DAY
     Dates: end: 20100106
  2. XANAX [Concomitant]
     Dosage: UNK
  3. LEXAPRO [Concomitant]
     Indication: ANXIETY
  4. CELEBREX [Suspect]
     Indication: THORACIC OUTLET SYNDROME
     Dosage: 200 MG, 1X/DAY
     Dates: start: 19990101
  5. LEXAPRO [Concomitant]
     Indication: DEPRESSION
     Dosage: 20 MG, DAILY
  6. SIMVASTATIN [Concomitant]
     Indication: BLOOD CHOLESTEROL ABNORMAL
     Dosage: 20 MG, DAILY

REACTIONS (6)
  - CERVICAL VERTEBRAL FRACTURE [None]
  - JAW FRACTURE [None]
  - PAIN [None]
  - ACCIDENT [None]
  - HEAD INJURY [None]
  - NERVOUS SYSTEM DISORDER [None]
